FAERS Safety Report 8485606 (Version 7)
Quarter: 2013Q2

REPORT INFORMATION
  Report Type: Spontaneous
  Country: FR (occurrence: FR)
  Receive Date: 20120330
  Receipt Date: 20130409
  Transmission Date: 20140414
  Serious: Yes (Other)
  Sender: FDA-Public Use
  Company Number: FR-B.I. PHARMACEUTICALS,INC./RIDGEFIELD-2012-BP-05908YA

PATIENT
  Age: 72 Year
  Sex: Male

DRUGS (2)
  1. TAMSULOSINA [Suspect]
     Indication: PROSTATE CANCER
     Route: 048
     Dates: start: 20111208, end: 20120118
  2. PARACETAMOL (PARACETAMOL) [Concomitant]

REACTIONS (3)
  - Hepatitis [Not Recovered/Not Resolved]
  - Jaundice [Not Recovered/Not Resolved]
  - Hyperbilirubinaemia [Not Recovered/Not Resolved]
